FAERS Safety Report 19510754 (Version 1)
Quarter: 2021Q3

REPORT INFORMATION
  Report Type: Spontaneous
  Country: US (occurrence: US)
  Receive Date: 20210708
  Receipt Date: 20210708
  Transmission Date: 20211014
  Serious: Yes (Death)
  Sender: FDA-Public Use
  Company Number: None

PATIENT
  Age: 58 Year
  Sex: Female
  Weight: 55.79 kg

DRUGS (5)
  1. PAROXETINE. [Concomitant]
     Active Substance: PAROXETINE
  2. LOSARTAN. [Concomitant]
     Active Substance: LOSARTAN
  3. XGEVA [Suspect]
     Active Substance: DENOSUMAB
     Dosage: OTHER FREQUENCY:Q28D;?
     Route: 058
     Dates: start: 20180614
  4. LETROZOLE. [Concomitant]
     Active Substance: LETROZOLE
  5. CETIRIZINE [Concomitant]
     Active Substance: CETIRIZINE HYDROCHLORIDE

REACTIONS (1)
  - Death [None]
